FAERS Safety Report 12646400 (Version 1)
Quarter: 2016Q3

REPORT INFORMATION
  Report Type: Report from Study
  Country: IN (occurrence: IN)
  Receive Date: 20160812
  Receipt Date: 20160812
  Transmission Date: 20161109
  Serious: Yes (Death, Other)
  Sender: FDA-Public Use
  Company Number: IN-009507513-1608IND005551

PATIENT
  Age: 67 Year
  Sex: Male
  Weight: 60 kg

DRUGS (1)
  1. SITAGLIPTIN PHOSPHATE [Suspect]
     Active Substance: SITAGLIPTIN PHOSPHATE
     Indication: DIABETES MELLITUS
     Dosage: 1 DF, QD, STRENGTH: 50 (UNITS NOT PROVIDED)
     Route: 048

REACTIONS (2)
  - Cerebral thrombosis [Fatal]
  - Fall [Fatal]
